FAERS Safety Report 18087739 (Version 2)
Quarter: 2020Q3

REPORT INFORMATION
  Report Type: Report from Study
  Country: US (occurrence: US)
  Receive Date: 20200729
  Receipt Date: 20200819
  Transmission Date: 20201103
  Serious: No
  Sender: FDA-Public Use
  Company Number: US-SHIRE-US201945971

PATIENT
  Age: 53 Year
  Sex: Female

DRUGS (8)
  1. PROMETHAZINE [Concomitant]
     Active Substance: PROMETHAZINE HYDROCHLORIDE
     Indication: NAUSEA
  2. RIVAROXABAN [Concomitant]
     Active Substance: RIVAROXABAN
     Indication: DEEP VEIN THROMBOSIS
  3. TEDUGLUTIDE [Suspect]
     Active Substance: TEDUGLUTIDE
     Indication: SHORT-BOWEL SYNDROME
     Dosage: 2.3 MILLIGRAM (DAILY DOSE: 0.5 MILLIGRAM.KILOGRAM), 1X/WEEK
     Route: 065
     Dates: start: 20141130
  4. TEDUGLUTIDE [Suspect]
     Active Substance: TEDUGLUTIDE
     Indication: SHORT-BOWEL SYNDROME
     Dosage: 2.3 MILLIGRAM (DAILY DOSE: 0.5 MILLIGRAM.KILOGRAM), 1X/WEEK
     Route: 065
     Dates: start: 20141130
  5. TEDUGLUTIDE [Suspect]
     Active Substance: TEDUGLUTIDE
     Indication: SHORT-BOWEL SYNDROME
     Dosage: 2.3 MILLIGRAM (DAILY DOSE: 0.5 MILLIGRAM.KILOGRAM), 1X/WEEK
     Route: 065
     Dates: start: 20141130
  6. METOCLOPRAMIDE. [Concomitant]
     Active Substance: METOCLOPRAMIDE
     Indication: GASTROOESOPHAGEAL REFLUX DISEASE
  7. ONDANSETRAN [Concomitant]
     Active Substance: ONDANSETRON HYDROCHLORIDE
     Indication: NAUSEA
  8. TEDUGLUTIDE [Suspect]
     Active Substance: TEDUGLUTIDE
     Indication: SHORT-BOWEL SYNDROME
     Dosage: 2.3 MILLIGRAM (DAILY DOSE: 0.5 MILLIGRAM.KILOGRAM), 1X/WEEK
     Route: 065
     Dates: start: 20141130

REACTIONS (1)
  - Small intestine polyp [Recovered/Resolved]

NARRATIVE: CASE EVENT DATE: 20190409
